FAERS Safety Report 6555719-3 (Version None)
Quarter: 2010Q1

REPORT INFORMATION
  Report Type: 
  Country: None (occurrence: None)
  Receive Date: 20100128
  Receipt Date: 20100118
  Transmission Date: 20100710
  Serious: Yes (Other)
  Sender: FDA-Public Use
  Company Number: US-ELI_LILLY_AND_COMPANY-US201001003961

PATIENT
  Sex: Male

DRUGS (2)
  1. CYMBALTA [Suspect]
     Dosage: 120 MG, UNK
  2. CYMBALTA [Suspect]
     Dosage: 1 D/F, UNK

REACTIONS (2)
  - CONSTIPATION [None]
  - SURGERY [None]
